FAERS Safety Report 16421362 (Version 1)
Quarter: 2019Q3

REPORT INFORMATION
  Report Type: Spontaneous
  Country: US (occurrence: US)
  Receive Date: 20190611
  Receipt Date: 20190611
  Transmission Date: 20191004
  Serious: Yes (Other)
  Sender: FDA-Public Use
  Company Number: None

PATIENT
  Age: 47 Year
  Sex: Female
  Weight: 80.1 kg

DRUGS (13)
  1. ENBREL [Suspect]
     Active Substance: ETANERCEPT
     Indication: RHEUMATOID ARTHRITIS
     Dosage: ?          QUANTITY:4 INJECTION(S);OTHER FREQUENCY:WEEKLY;?
     Route: 058
     Dates: start: 20190405, end: 20190510
  2. SULFASALAZINE. [Concomitant]
     Active Substance: SULFASALAZINE
  3. BIOTIN [Concomitant]
     Active Substance: BIOTIN
  4. INTRAMAX LIQUID [Concomitant]
  5. KRILL OIL [Concomitant]
     Active Substance: DIETARY SUPPLEMENT\KRILL OIL
  6. FEXOFENADINE [Concomitant]
     Active Substance: FEXOFENADINE HYDROCHLORIDE
  7. HYDROXYCHLOROQUINE [Concomitant]
     Active Substance: HYDROXYCHLOROQUINE
  8. NP THYROID [Concomitant]
     Active Substance: LEVOTHYROXINE\LIOTHYRONINE
  9. METHOTREXATE. [Concomitant]
     Active Substance: METHOTREXATE
  10. CETIRIZINE [Concomitant]
     Active Substance: CETIRIZINE HYDROCHLORIDE
  11. HISTABLOCK [Concomitant]
  12. LEUCOVORIN CALCIUM. [Concomitant]
     Active Substance: LEUCOVORIN CALCIUM
  13. OMEGA-3 ACIDS [Concomitant]
     Active Substance: OMEGA-3 FATTY ACIDS

REACTIONS (2)
  - Injection site reaction [None]
  - Swelling of eyelid [None]

NARRATIVE: CASE EVENT DATE: 20190511
